FAERS Safety Report 15375422 (Version 1)
Quarter: 2018Q3

REPORT INFORMATION
  Report Type: Spontaneous
  Country: GR (occurrence: GR)
  Receive Date: 20180912
  Receipt Date: 20180912
  Transmission Date: 20181010
  Serious: Yes (Death, Hospitalization)
  Sender: FDA-Public Use
  Company Number: GR-INCYTE CORPORATION-2018IN007208

PATIENT

DRUGS (1)
  1. JAKAVI [Suspect]
     Active Substance: RUXOLITINIB
     Indication: MYELOFIBROSIS
     Dosage: 5 MG, BID (5 MG X 2 DAILY)
     Route: 065
     Dates: end: 20180810

REACTIONS (6)
  - Myocardial ischaemia [Fatal]
  - Pneumonia [Fatal]
  - Anaemia [Fatal]
  - Contusion [Unknown]
  - Ischaemia [Unknown]
  - Myocardial necrosis [Fatal]
